FAERS Safety Report 7412514-0 (Version None)
Quarter: 2011Q2

REPORT INFORMATION
  Report Type: 
  Country: None (occurrence: None)
  Receive Date: 20110405
  Receipt Date: 20110317
  Transmission Date: 20111010
  Serious: Yes (Death)
  Sender: FDA-Public Use
  Company Number: 2011P1005350

PATIENT
  Age: 10 Year
  Sex: Male

DRUGS (10)
  1. METHYLPHENIDATE [Suspect]
     Dosage: PO
     Route: 048
  2. LORAZEPAM [Suspect]
     Dosage: PO
  3. CLONAZEPAM [Suspect]
     Dosage: PO
  4. LORATADINE [Suspect]
     Dosage: PO
     Route: 048
  5. OMEPRAZOLE [Suspect]
     Dosage: PO
     Route: 048
  6. VALPROIC ACID [Suspect]
     Dosage: PO
     Route: 048
  7. ATOMEXETINE (NO PREF. NAME) [Suspect]
     Dosage: PO
  8. ALPRAZOLAM [Suspect]
     Dosage: PO
  9. QUETIAPINE [Suspect]
     Dosage: PO
     Route: 048
  10. RISPERIDONE [Suspect]
     Dosage: PO
     Route: 048

REACTIONS (3)
  - RESPIRATORY ARREST [None]
  - UNEVALUABLE EVENT [None]
  - CARDIAC ARREST [None]
